FAERS Safety Report 25962481 (Version 1)
Quarter: 2025Q4

REPORT INFORMATION
  Report Type: Report from Study
  Country: US (occurrence: US)
  Receive Date: 20251027
  Receipt Date: 20251027
  Transmission Date: 20260117
  Serious: Yes (Other)
  Sender: ALEXION PHARMACEUTICALS
  Company Number: US-ASTRAZENECA-202510NAM022782US

PATIENT
  Age: 78 Year
  Sex: Female

DRUGS (2)
  1. STRENSIQ [Suspect]
     Active Substance: ASFOTASE ALFA
     Indication: Phosphorus metabolism disorder
     Dosage: 100 MILLIGRAM, 3 TIMES PER WEEK
     Route: 065
  2. STRENSIQ [Suspect]
     Active Substance: ASFOTASE ALFA
     Dosage: 100 MILLIGRAM, 3 TIMES PER WEEK
     Route: 065

REACTIONS (5)
  - Dermatomyositis [Recovering/Resolving]
  - Retinal deposits [Unknown]
  - Pain in extremity [Unknown]
  - Arthralgia [Unknown]
  - Rash [Unknown]
